FAERS Safety Report 19138185 (Version 1)
Quarter: 2021Q2

REPORT INFORMATION
  Report Type: Spontaneous
  Country: DE (occurrence: DE)
  Receive Date: 20210415
  Receipt Date: 20210415
  Transmission Date: 20210717
  Serious: Yes (Hospitalization)
  Sender: FDA-Public Use
  Company Number: DE-DRREDDYS-GER/GER/21/0133907

PATIENT
  Age: 14 Year
  Sex: Female
  Weight: 60 kg

DRUGS (4)
  1. WEIN [Suspect]
     Active Substance: WINE
     Indication: SUICIDAL IDEATION
     Dosage: UNKLAR
     Route: 048
     Dates: start: 20200610, end: 20200610
  2. OMEGA?3 ACIDS [Suspect]
     Active Substance: OMEGA-3 FATTY ACIDS
     Indication: SUICIDAL IDEATION
     Dosage: DAILY DOSE: 4 DF DOSAGE FORM EVERY DAYS
     Route: 048
     Dates: start: 20200610, end: 20200610
  3. IBUPROFEN. [Suspect]
     Active Substance: IBUPROFEN
     Indication: SUICIDAL IDEATION
     Dosage: DAILY DOSE: 4800 MG MILLGRAM(S) EVERY DAYS 6 SEPARATED DOSES
     Route: 048
     Dates: start: 20200610, end: 20200610
  4. METAMIZOL TROPFEN 500MG/ML [Suspect]
     Active Substance: METAMIZOLE SODIUM
     Indication: SUICIDAL IDEATION
     Dosage: UNKLAR
     Route: 048
     Dates: start: 20200610, end: 20200610

REACTIONS (2)
  - Toxicity to various agents [Recovered/Resolved]
  - Intentional overdose [Recovered/Resolved]

NARRATIVE: CASE EVENT DATE: 20200610
